FAERS Safety Report 10411025 (Version 1)
Quarter: 2014Q1

REPORT INFORMATION
  Report Type: Spontaneous
  Country: US (occurrence: None)
  Receive Date: 20140318
  Receipt Date: 20140318
  Transmission Date: 20141002
  Serious: Yes (Other)
  Sender: FDA-Public Use
  Company Number: US-JNJFOC-20130809862

PATIENT
  Sex: Male

DRUGS (1)
  1. ROGAINE FOR MEN EXTRA STRENGTH FOAM UNSCENTED [Suspect]
     Indication: PRODUCT USED FOR UNKNOWN INDICATION
     Route: 061

REACTIONS (3)
  - Headache [None]
  - Dizziness [None]
  - Chest pain [None]
